FAERS Safety Report 7417632-9 (Version None)
Quarter: 2011Q2

REPORT INFORMATION
  Report Type: 
  Country: None (occurrence: None)
  Receive Date: 20110415
  Receipt Date: 20110405
  Transmission Date: 20111010
  Serious: Yes (Hospitalization)
  Sender: FDA-Public Use
  Company Number: PHHY2009DE31231

PATIENT
  Sex: Female

DRUGS (3)
  1. FEMARA [Suspect]
     Indication: BREAST CANCER
     Dosage: 2.5 MG, QD
     Route: 048
     Dates: start: 20070310
  2. VOLTAREN [Concomitant]
     Route: 048
  3. TORSEMIDE [Concomitant]
     Dosage: UNK
     Route: 048
     Dates: start: 20081215

REACTIONS (3)
  - CONCUSSION [None]
  - MUSCULOSKELETAL DISCOMFORT [None]
  - FALL [None]
